FAERS Safety Report 10065108 (Version 1)
Quarter: 2014Q1

REPORT INFORMATION
  Report Type: Spontaneous
  Country: US (occurrence: None)
  Receive Date: 20140328
  Receipt Date: 20140328
  Transmission Date: 20141002
  Serious: No
  Sender: FDA-Public Use
  Company Number: CABO-13003724

PATIENT
  Age: 76 Year
  Sex: Male
  Weight: 69 kg

DRUGS (1)
  1. COMETRIQ (CABOZANTINIB) [Suspect]
     Indication: THYROID CANCER
     Route: 048
     Dates: end: 201307

REACTIONS (1)
  - Pain [None]
